FAERS Safety Report 11568860 (Version 2)
Quarter: 2015Q4

REPORT INFORMATION
  Report Type: Report from Study
  Country: US (occurrence: US)
  Receive Date: 20150929
  Receipt Date: 20151022
  Transmission Date: 20160304
  Serious: Yes (Other)
  Sender: FDA-Public Use
  Company Number: US-AMGEN-USASL2015098020

PATIENT
  Age: 58 Year
  Sex: Female

DRUGS (4)
  1. PROCRIT [Concomitant]
     Active Substance: ERYTHROPOIETIN
     Indication: ANAEMIA
     Dosage: UNK
  2. ENBREL [Suspect]
     Active Substance: ETANERCEPT
     Indication: PSORIATIC ARTHROPATHY
  3. ENBREL [Suspect]
     Active Substance: ETANERCEPT
     Indication: PSORIASIS
     Dosage: UNK
     Route: 065
     Dates: start: 200601
  4. ENBREL [Suspect]
     Active Substance: ETANERCEPT
     Indication: RHEUMATOID ARTHRITIS

REACTIONS (21)
  - Hospitalisation [Not Recovered/Not Resolved]
  - Hyperkeratosis [Unknown]
  - Influenza [Not Recovered/Not Resolved]
  - Paraesthesia [Recovered/Resolved]
  - Hypoaesthesia [Unknown]
  - Malaise [Not Recovered/Not Resolved]
  - Pain in extremity [Recovered/Resolved]
  - Wound haemorrhage [Not Recovered/Not Resolved]
  - Viral infection [Recovered/Resolved]
  - Hypoglycaemia [Unknown]
  - Cough [Not Recovered/Not Resolved]
  - Disorientation [Unknown]
  - Skin exfoliation [Not Recovered/Not Resolved]
  - Skin ulcer [Unknown]
  - Impaired healing [Not Recovered/Not Resolved]
  - Mobility decreased [Unknown]
  - Neuropathy peripheral [Unknown]
  - Epistaxis [Not Recovered/Not Resolved]
  - Pain [Unknown]
  - Anaemia [Not Recovered/Not Resolved]
  - Psoriasis [Unknown]
